FAERS Safety Report 10255909 (Version 1)
Quarter: 2014Q2

REPORT INFORMATION
  Report Type: Spontaneous
  Country: US (occurrence: None)
  Receive Date: 20140530
  Receipt Date: 20140530
  Transmission Date: 20141212
  Serious: Yes (Hospitalization)
  Sender: FDA-Public Use
  Company Number: 2013037187

PATIENT
  Sex: Male
  Weight: 115.67 kg

DRUGS (10)
  1. HIZENTRA (IMMUNOGLOBULIN HUMAN NORMAL) [Suspect]
     Indication: IMMUNODEFICIENCY COMMON VARIABLE
     Dosage: 16 G 1X/WEEK, INFUSE VIA 4 SITES OVER 1-2 HOURS SUBCUTANEOUS
     Route: 058
  2. DIPHENHYDRAMINE (DIPHENHYDRAMINE) [Concomitant]
  3. EPI-PEN (EPINEPHRINE) [Concomitant]
  4. VITAMIN E (TOCOPHEROL) [Concomitant]
  5. AVELOX (MOXIFLOXACIN HYDROCHLORIDE) [Concomitant]
  6. CITALOPRAM (CITALOPRAM) [Concomitant]
  7. OMEPRAZOLE (OMEPRAZOLE) [Concomitant]
  8. IBUPROFEN (IBUPROFEN) [Concomitant]
  9. MULTIVITAMINS (MULTIVITAMINS) [Concomitant]
  10. FISH OIL (FISH OIL) [Concomitant]

REACTIONS (1)
  - Abdominal pain [None]
